FAERS Safety Report 7399921-X (Version None)
Quarter: 2011Q2

REPORT INFORMATION
  Report Type: 
  Country: None (occurrence: None)
  Receive Date: 20110407
  Receipt Date: 20110324
  Transmission Date: 20111010
  Serious: Yes (Hospitalization, Other)
  Sender: FDA-Public Use
  Company Number: US-JNJFOC-20110311550

PATIENT
  Sex: Male
  Weight: 106.14 kg

DRUGS (3)
  1. OXYCONTIN [Concomitant]
     Indication: PAIN
     Route: 065
  2. FENTANYL [Suspect]
     Indication: BACK PAIN
     Dosage: NDC#0781-7244-55
     Route: 062
  3. UNSPECIFIED ANTIDEPRESSANTS [Concomitant]
     Indication: DEPRESSION
     Route: 065

REACTIONS (6)
  - DEPRESSION [None]
  - TREATMENT NONCOMPLIANCE [None]
  - STRESS [None]
  - NERVOUSNESS [None]
  - BACK PAIN [None]
  - BEDRIDDEN [None]
